FAERS Safety Report 9178664 (Version 1)
Quarter: 2012Q4

REPORT INFORMATION
  Report Type: 
  Country: US (occurrence: US)
  Receive Date: 20121029
  Receipt Date: 20121029
  Transmission Date: 20130627
  Serious: No
  Sender: FDA-Public Use
  Company Number: US-TEVA-367059USA

PATIENT
  Sex: Female
  Weight: 86.26 kg

DRUGS (10)
  1. COPAXONE [Suspect]
     Indication: MULTIPLE SCLEROSIS
     Dosage: 20 Milligram Daily;
     Route: 058
     Dates: start: 20000419
  2. CYCLOBENZAPRINE [Concomitant]
     Indication: MUSCLE SPASMS
     Route: 048
  3. HYDROCODONE W/ACETAMINOPHEN [Concomitant]
     Indication: PAIN
     Dosage: 5/500 mg
     Route: 048
  4. MECLIZINE [Concomitant]
     Indication: HEAD DISCOMFORT
     Route: 048
  5. CARVEDILOL [Concomitant]
     Indication: BLOOD PRESSURE ABNORMAL
     Route: 048
  6. ASPIRIN [Concomitant]
     Route: 048
  7. CENTRUM SILVER [Concomitant]
     Route: 048
  8. ESTROBLAND [Concomitant]
     Indication: SUPPLEMENTATION THERAPY
     Route: 048
  9. CALCIUM W/VITAMIN D [Concomitant]
     Indication: SUPPLEMENTATION THERAPY
     Route: 048
  10. BRIMONIDINE [Concomitant]
     Dosage: 0.2%
     Route: 031

REACTIONS (4)
  - Fall [Unknown]
  - Back injury [Unknown]
  - Back pain [Not Recovered/Not Resolved]
  - Hypoaesthesia [Not Recovered/Not Resolved]
